FAERS Safety Report 6035420-5 (Version None)
Quarter: 2009Q1

REPORT INFORMATION
  Report Type: 
  Country: None (occurrence: None)
  Receive Date: 20090113
  Receipt Date: 20090108
  Transmission Date: 20090719
  Serious: No
  Sender: FDA-Public Use
  Company Number: US-JNJFOC-20090101858

PATIENT
  Sex: Female
  Weight: 77.11 kg

DRUGS (2)
  1. DURAGESIC-100 [Suspect]
     Indication: ROAD TRAFFIC ACCIDENT
     Route: 062
  2. UNSPECIFIED DRUGS [Concomitant]
     Indication: DRUG USE FOR UNKNOWN INDICATION
     Route: 065

REACTIONS (1)
  - WRONG TECHNIQUE IN DRUG USAGE PROCESS [None]
